FAERS Safety Report 4512976-2 (Version None)
Quarter: 2004Q4

REPORT INFORMATION
  Report Type: 
  Country: None (occurrence: None)
  Receive Date: 20041124
  Receipt Date: 20041112
  Transmission Date: 20050328
  Serious: Yes (Death)
  Sender: FDA-Public Use
  Company Number: CEL-2002-01177-ROC

PATIENT
  Age: 2 Year
  Sex: Female

DRUGS (2)
  1. TUSSIONEX [Suspect]
     Indication: COUGH
     Dosage: 7.5 ML, FREQUENCY AND ROUTE UNKNOWN
  2. ANTIBIOTICS (ANTIBIOTICS) [Concomitant]

REACTIONS (2)
  - DRUG TOXICITY [None]
  - MEDICATION ERROR [None]
